FAERS Safety Report 6537435-7 (Version None)
Quarter: 2010Q1

REPORT INFORMATION
  Report Type: 
  Country: None (occurrence: None)
  Receive Date: 20100114
  Receipt Date: 20100113
  Transmission Date: 20100710
  Serious: Yes (Life-Threatening)
  Sender: FDA-Public Use
  Company Number: JP-SANOFI-AVENTIS-2009SA001430

PATIENT
  Age: 75 Year
  Sex: Male
  Weight: 56 kg

DRUGS (11)
  1. ALLEGRA [Suspect]
     Route: 048
     Dates: end: 20090615
  2. ALLEGRA [Suspect]
  3. ANCARON [Suspect]
     Dates: start: 20030101, end: 20090611
  4. ANCARON [Suspect]
     Indication: ARRHYTHMIA
     Dates: start: 20030101, end: 20090611
  5. METHYCOBAL [Concomitant]
     Route: 048
  6. ARTIST [Concomitant]
     Route: 048
  7. ASPIRIN [Concomitant]
  8. LASIX [Concomitant]
  9. ALDACTONE [Concomitant]
  10. TAKEPRON [Concomitant]
  11. ACECOL [Concomitant]

REACTIONS (1)
  - LUNG DISORDER [None]
